FAERS Safety Report 5389671-3 (Version None)
Quarter: 2007Q3

REPORT INFORMATION
  Report Type: 
  Country: None (occurrence: None)
  Receive Date: 20070717
  Receipt Date: 20070705
  Transmission Date: 20080115
  Serious: Yes (Other)
  Sender: FDA-Public Use
  Company Number: GB-BAUSCH-2007BL002266

PATIENT
  Age: 58 Year
  Sex: Female

DRUGS (26)
  1. CYCLOPENTOLATE HCL [Suspect]
     Route: 047
     Dates: start: 20070614, end: 20070614
  2. CYCLOPENTOLATE HCL [Suspect]
     Indication: CORNEAL TRANSPLANT
     Route: 047
     Dates: start: 20070614, end: 20070614
  3. MINIMS PHENYLEPHRINE HYDROCHLORIDE 2.5% [Suspect]
     Route: 047
     Dates: start: 20070614, end: 20070614
  4. MINIMS PHENYLEPHRINE HYDROCHLORIDE 2.5% [Suspect]
     Indication: CORNEAL TRANSPLANT
     Route: 047
     Dates: start: 20070614, end: 20070614
  5. FLURBIPROFEN SODIUM [Suspect]
     Route: 047
     Dates: start: 20070614, end: 20070614
  6. FLURBIPROFEN SODIUM [Suspect]
     Indication: CORNEAL TRANSPLANT
     Route: 047
     Dates: start: 20070614, end: 20070614
  7. GLYCEROL 2.6% [Suspect]
     Route: 047
     Dates: start: 20070614, end: 20070614
  8. GLYCEROL 2.6% [Suspect]
     Indication: CORNEAL TRANSPLANT
     Route: 047
     Dates: start: 20070614, end: 20070614
  9. POVIDONE IODINE [Suspect]
     Route: 047
     Dates: start: 20070614, end: 20070614
  10. POVIDONE IODINE [Suspect]
     Indication: CORNEAL TRANSPLANT
     Route: 047
     Dates: start: 20070614, end: 20070614
  11. POVIDONE IODINE [Suspect]
     Route: 061
     Dates: start: 20070614, end: 20070614
  12. POVIDONE IODINE [Suspect]
     Route: 061
     Dates: start: 20070614, end: 20070614
  13. BALANCED SALT SOLUTION [Suspect]
     Route: 031
     Dates: start: 20070614, end: 20070614
  14. BALANCED SALT SOLUTION [Suspect]
     Indication: CORNEAL TRANSPLANT
     Route: 031
     Dates: start: 20070614, end: 20070614
  15. VANCOMYCIN [Suspect]
     Route: 031
     Dates: start: 20070614, end: 20070614
  16. VANCOMYCIN [Suspect]
     Indication: CORNEAL TRANSPLANT
     Route: 031
     Dates: start: 20070614, end: 20070614
  17. ADRENALINE [Suspect]
     Route: 031
     Dates: start: 20070614, end: 20070614
  18. ADRENALINE [Suspect]
     Indication: CORNEAL TRANSPLANT
     Route: 031
     Dates: start: 20070614, end: 20070614
  19. LIDOCAINE [Suspect]
     Route: 031
     Dates: start: 20070614, end: 20070614
  20. LIDOCAINE [Suspect]
     Indication: CORNEAL TRANSPLANT
     Route: 031
     Dates: start: 20070614, end: 20070614
  21. HYALURONIDASE [Suspect]
     Route: 031
     Dates: start: 20070614, end: 20070614
  22. HYALURONIDASE [Suspect]
     Indication: CORNEAL TRANSPLANT
     Route: 031
     Dates: start: 20070614, end: 20070614
  23. MINIMS DEXAMETHASONE SODIUM PHOSPHATE 0.1% [Suspect]
     Route: 047
     Dates: start: 20070614
  24. MINIMS DEXAMETHASONE SODIUM PHOSPHATE 0.1% [Suspect]
     Indication: CORNEAL TRANSPLANT
     Route: 047
     Dates: start: 20070614
  25. FLOXAL AUGENTROPFEN [Suspect]
     Route: 047
     Dates: start: 20070614
  26. FLOXAL AUGENTROPFEN [Suspect]
     Indication: CORNEAL TRANSPLANT
     Route: 047
     Dates: start: 20070614

REACTIONS (1)
  - IRIDOCYCLITIS [None]
